FAERS Safety Report 23957785 (Version 1)
Quarter: 2024Q2

REPORT INFORMATION
  Report Type: Spontaneous
  Country: US (occurrence: None)
  Receive Date: 20240608
  Receipt Date: 20240608
  Transmission Date: 20240715
  Serious: Yes (unspecified)
  Sender: FDA-Public Use
  Company Number: None

PATIENT
  Age: 24 Year
  Sex: Female
  Weight: 90 kg

DRUGS (1)
  1. MONISTAT 1 COMBINATION PACK [Suspect]
     Active Substance: MICONAZOLE NITRATE
     Indication: Vulvovaginal mycotic infection
     Dosage: OTHER QUANTITY : 1 1 EXTERNAL CREAM?FREQUENCY : AS NEEDED?
     Route: 067
     Dates: start: 20240607, end: 20240608

REACTIONS (4)
  - Application site pain [None]
  - Application site pain [None]
  - Application site reaction [None]
  - Crying [None]

NARRATIVE: CASE EVENT DATE: 20240608
